FAERS Safety Report 17614673 (Version 2)
Quarter: 2020Q2

REPORT INFORMATION
  Report Type: Report from Study
  Country: US (occurrence: US)
  Receive Date: 20200402
  Receipt Date: 20200526
  Transmission Date: 20200713
  Serious: Yes (Hospitalization, Other)
  Sender: FDA-Public Use
  Company Number: US-ASTELLAS-2020US007660

PATIENT
  Age: 83 Year
  Sex: Female

DRUGS (2)
  1. MIRABEGRON [Suspect]
     Active Substance: MIRABEGRON
     Indication: HYPERTONIC BLADDER
     Route: 048
     Dates: start: 201908
  2. MIRABEGRON [Suspect]
     Active Substance: MIRABEGRON
     Route: 048

REACTIONS (5)
  - Kidney infection [Unknown]
  - Intentional product use issue [Unknown]
  - Bronchitis [Unknown]
  - Inability to afford medication [Unknown]
  - Product availability issue [Unknown]

NARRATIVE: CASE EVENT DATE: 202002
